FAERS Safety Report 18942691 (Version 2)
Quarter: 2021Q2

REPORT INFORMATION
  Report Type: Report from Study
  Country: MX (occurrence: MX)
  Receive Date: 20210225
  Receipt Date: 20210412
  Transmission Date: 20210717
  Serious: Yes (Death)
  Sender: FDA-Public Use
  Company Number: MX-INCYTE CORPORATION-2021IN001411

PATIENT

DRUGS (1)
  1. JAKAVI [Suspect]
     Active Substance: RUXOLITINIB
     Indication: COVID-19
     Dosage: 5 MG, Q12H
     Route: 048
     Dates: start: 20210127

REACTIONS (2)
  - Product use in unapproved indication [Unknown]
  - COVID-19 [Fatal]

NARRATIVE: CASE EVENT DATE: 20210127
